FAERS Safety Report 16033252 (Version 1)
Quarter: 2019Q1

REPORT INFORMATION
  Report Type: Spontaneous
  Country: CA (occurrence: CA)
  Receive Date: 20190305
  Receipt Date: 20190305
  Transmission Date: 20190418
  Serious: Yes (Other)
  Sender: FDA-Public Use
  Company Number: CA-SA-2019SA054729

PATIENT
  Sex: Female

DRUGS (3)
  1. PLAQUENIL [Suspect]
     Active Substance: HYDROXYCHLOROQUINE SULFATE
     Dosage: 200 MG, BID
  2. LEFLUNOMIDE. [Suspect]
     Active Substance: LEFLUNOMIDE
     Dosage: UNK
  3. METHOTREXATE [METHOTREXATE SODIUM] [Concomitant]
     Active Substance: METHOTREXATE SODIUM

REACTIONS (5)
  - Nephrolithiasis [Unknown]
  - Urinary tract infection [Unknown]
  - Influenza [Unknown]
  - Nasopharyngitis [Unknown]
  - Muscle strain [Unknown]
